FAERS Safety Report 12376560 (Version 2)
Quarter: 2016Q2

REPORT INFORMATION
  Report Type: Spontaneous
  Country: US (occurrence: US)
  Receive Date: 20160517
  Receipt Date: 20160517
  Transmission Date: 20160815
  Serious: No
  Sender: FDA-Public Use
  Company Number: US-MALLINCKRODT-T201502392

PATIENT
  Age: 54 Year
  Sex: Female
  Weight: 95 kg

DRUGS (15)
  1. VALIUM [Concomitant]
     Active Substance: DIAZEPAM
  2. CLARITIN ALLERGY DECONGESTANT [Concomitant]
  3. ZANTAC [Concomitant]
     Active Substance: RANITIDINE HYDROCHLORIDE
     Dosage: BID
  4. PREMARIN [Concomitant]
     Active Substance: ESTROGENS, CONJUGATED
  5. AMPYRA [Concomitant]
     Active Substance: DALFAMPRIDINE
  6. DILTIAZEM [Concomitant]
     Active Substance: DILTIAZEM
  7. COPAXONE [Concomitant]
     Active Substance: GLATIRAMER ACETATE
  8. CRANBERRY. [Concomitant]
     Active Substance: CRANBERRY
     Dosage: Q HS
  9. H.P. ACTHAR [Suspect]
     Active Substance: CORTICOTROPIN
     Indication: MULTIPLE SCLEROSIS RELAPSE
     Dosage: 80 UNITS ONCE DAILY FOR 5 DAYS
     Route: 058
     Dates: start: 20150428, end: 20150502
  10. ANTARA [Concomitant]
     Active Substance: FENOFIBRATE
  11. VITAMIN D3 [Concomitant]
     Active Substance: CHOLECALCIFEROL
     Dosage: 5000 UNITS
  12. OMEPRAZOLE. [Concomitant]
     Active Substance: OMEPRAZOLE
  13. CALCIUM [Concomitant]
     Active Substance: CALCIUM
  14. MAGNESIUM CHLORIDE. [Concomitant]
     Active Substance: MAGNESIUM CHLORIDE
     Dosage: QD
  15. BABY ASPIRIN [Concomitant]
     Active Substance: ASPIRIN
     Dosage: Q HS

REACTIONS (5)
  - Blood glucose increased [Not Recovered/Not Resolved]
  - Arthralgia [Not Recovered/Not Resolved]
  - Fluid retention [Not Recovered/Not Resolved]
  - Drug ineffective [Unknown]
  - Tremor [Not Recovered/Not Resolved]

NARRATIVE: CASE EVENT DATE: 20150428
